FAERS Safety Report 5683072-6 (Version None)
Quarter: 2008Q1

REPORT INFORMATION
  Report Type: 
  Country: None (occurrence: None)
  Receive Date: 20080327
  Receipt Date: 20080320
  Transmission Date: 20080703
  Serious: Yes (Other)
  Sender: FDA-Public Use
  Company Number: AU-ALLERGAN-0803358US

PATIENT
  Sex: Male

DRUGS (4)
  1. COMBIGAN [Suspect]
     Indication: GLAUCOMA
     Dosage: UNK, QPM
  2. LIPITOR [Concomitant]
     Indication: DRUG USE FOR UNKNOWN INDICATION
  3. MONOPLUS [Concomitant]
     Indication: DRUG USE FOR UNKNOWN INDICATION
  4. XALATAN [Concomitant]
     Indication: DRUG USE FOR UNKNOWN INDICATION

REACTIONS (1)
  - HYPOTENSION [None]
